FAERS Safety Report 6136563-8 (Version None)
Quarter: 2009Q1

REPORT INFORMATION
  Report Type: 
  Country: None (occurrence: None)
  Receive Date: 20090330
  Receipt Date: 20090329
  Transmission Date: 20090719
  Serious: Yes (Other)
  Sender: FDA-Public Use
  Company Number: US-PFIZER INC-2009169077

PATIENT
  Sex: Female
  Weight: 180.98 kg

DRUGS (5)
  1. ARTHROTEC [Suspect]
     Indication: ARTHRITIS
     Dosage: 200 MG, 2X/DAY
     Dates: end: 20000101
  2. METFORMIN HCL [Suspect]
     Indication: DIABETES MELLITUS
     Dates: end: 20000101
  3. HYDROCHLOROTHIAZIDE [Concomitant]
     Dosage: UNK
  4. ZYRTEC [Concomitant]
     Dosage: UNK
  5. SYMBICORT [Concomitant]
     Dosage: UNK

REACTIONS (5)
  - ABDOMINAL PAIN [None]
  - DIABETES MELLITUS [None]
  - DIARRHOEA [None]
  - EATING DISORDER [None]
  - GASTRITIS EROSIVE [None]
